FAERS Safety Report 6182738-1 (Version None)
Quarter: 2009Q2

REPORT INFORMATION
  Report Type: 
  Country: None (occurrence: None)
  Receive Date: 20090507
  Receipt Date: 20090423
  Transmission Date: 20091009
  Serious: Yes (Other)
  Sender: FDA-Public Use
  Company Number: JP-GENENTECH-264616

PATIENT
  Age: 75 Year
  Sex: Male

DRUGS (4)
  1. AVASTIN [Suspect]
     Indication: COLON CANCER
     Dosage: 5 MG/KG, Q2W
     Route: 042
     Dates: start: 20080410, end: 20080703
  2. OXALIPLATIN [Suspect]
     Indication: COLON CANCER
     Dosage: UNK
     Route: 041
     Dates: start: 20080214, end: 20080703
  3. FLUOROURACIL [Suspect]
     Indication: COLON CANCER
     Dosage: UNK
     Route: 041
     Dates: start: 20080214, end: 20080704
  4. ISOVORIN [Suspect]
     Indication: COLON CANCER
     Dosage: UNK
     Route: 041
     Dates: start: 20080214, end: 20080703

REACTIONS (1)
  - DISSEMINATED INTRAVASCULAR COAGULATION [None]
